FAERS Safety Report 7213562-6 (Version None)
Quarter: 2010Q4

REPORT INFORMATION
  Report Type: 
  Country: None (occurrence: None)
  Receive Date: 20101229
  Receipt Date: 20101215
  Transmission Date: 20110411
  Serious: Yes (Other)
  Sender: FDA-Public Use
  Company Number: JPI-P-010178

PATIENT
  Age: 64 Year
  Sex: Male
  Weight: 69.8539 kg

DRUGS (7)
  1. XYREM [Suspect]
     Indication: INSOMNIA
     Dosage: 4.5 GM (2.25 GM, 2 IN 1 D), ORAL; 7.5 GM (3.75 GM, 2 IN 1 D),ORAL
     Route: 048
     Dates: start: 20100204, end: 20100101
  2. XYREM [Suspect]
     Indication: INSOMNIA
     Dosage: 4.5 GM (2.25 GM, 2 IN 1 D), ORAL; 7.5 GM (3.75 GM, 2 IN 1 D),ORAL
     Route: 048
     Dates: start: 20100101
  3. LAMIVUDINE [Concomitant]
  4. TACROLIMUS [Concomitant]
  5. MYCOPHENOLATE MOFETIL [Concomitant]
  6. SULFAMETHOXAZOLE AND TRIMETHOPRIM [Concomitant]
  7. DULOXETINE HDROCHLORIDE [Concomitant]

REACTIONS (6)
  - BLOOD GLUCOSE INCREASED [None]
  - BLOOD PRESSURE INCREASED [None]
  - CALCULUS BLADDER [None]
  - POLLAKIURIA [None]
  - PROSTATE CANCER [None]
  - PROSTATOMEGALY [None]
